FAERS Safety Report 7406491-6 (Version None)
Quarter: 2011Q2

REPORT INFORMATION
  Report Type: 
  Country: None (occurrence: None)
  Receive Date: 20110405
  Receipt Date: 20110405
  Transmission Date: 20111010
  Serious: Yes (Other)
  Sender: FDA-Public Use
  Company Number: None

PATIENT
  Age: 32 Year
  Sex: Female
  Weight: 54.4316 kg

DRUGS (2)
  1. ZYRTEC [Suspect]
     Indication: HYPERSENSITIVITY
     Dosage: 1 PILL 1 TIME A DAY PO
     Route: 048
     Dates: start: 20061029, end: 20110201
  2. CETIRIZINE HCL [Suspect]
     Indication: HYPERSENSITIVITY
     Dosage: 1 PILL 1 TIME A DAY PO
     Route: 048
     Dates: start: 20110313, end: 20110316

REACTIONS (2)
  - PRURITUS [None]
  - DRUG INEFFECTIVE [None]
